FAERS Safety Report 11554418 (Version 1)
Quarter: 2015Q3

REPORT INFORMATION
  Report Type: Spontaneous
  Country: RS (occurrence: RS)
  Receive Date: 20150925
  Receipt Date: 20150925
  Transmission Date: 20151125
  Serious: Yes (Other)
  Sender: FDA-Public Use
  Company Number: RS-ASTELLAS-2015US031234

PATIENT

DRUGS (4)
  1. FIDEROL [Concomitant]
     Indication: BLOOD IRON DECREASED
     Dosage: UNK, 20 DROPS ON SECOND DAY
     Route: 065
     Dates: start: 201506
  2. TACROLIMUS. [Suspect]
     Active Substance: TACROLIMUS
     Indication: IMMUNOSUPPRESSION
     Dosage: 0.8 MG, TWICE DAILY (MORNING AND EVENING)
     Route: 065
  3. PROPRANOLOL [Concomitant]
     Active Substance: PROPRANOLOL\PROPRANOLOL HYDROCHLORIDE
     Indication: CARDIAC DISORDER
     Route: 065
     Dates: start: 201405
  4. CALCIUM [Concomitant]
     Active Substance: CALCIUM
     Indication: PROPHYLAXIS
     Dosage: UNK UNK, 125 MG ON SECOND DAY
     Route: 065

REACTIONS (10)
  - Neutropenia [Recovering/Resolving]
  - Hyperpyrexia [Unknown]
  - Epstein-Barr virus infection [Unknown]
  - Blood potassium increased [Recovered/Resolved]
  - Haemodynamic instability [Unknown]
  - Septic shock [Unknown]
  - Cytomegalovirus infection [Unknown]
  - Renal impairment [Recovered/Resolved]
  - Pleural effusion [Unknown]
  - Hypokalaemia [Unknown]
